FAERS Safety Report 4806978-6 (Version None)
Quarter: 2005Q4

REPORT INFORMATION
  Report Type: 
  Country: None (occurrence: None)
  Receive Date: 20051019
  Receipt Date: 20051005
  Transmission Date: 20060501
  Serious: Yes (Disabling, Congenital Anomaly)
  Sender: FDA-Public Use
  Company Number: FR_051007260

PATIENT
  Age: 1 Day

DRUGS (2)
  1. PROZAC [Suspect]
     Dates: start: 20041010, end: 20041101
  2. ATARAX (ALPRAZOLAM) [Concomitant]

REACTIONS (3)
  - DRUG EXPOSURE DURING PREGNANCY [None]
  - HIP DYSPLASIA [None]
  - PREMATURE BABY [None]
